FAERS Safety Report 10641879 (Version 2)
Quarter: 2015Q1

REPORT INFORMATION
  Report Type: Report from Study
  Country: DE (occurrence: FR)
  Receive Date: 20141209
  Receipt Date: 20150122
  Transmission Date: 20150720
  Serious: Yes (Other)
  Sender: FDA-Public Use
  Company Number: DE-ACTELION-A-US2014-109374

PATIENT
  Age: 81 Year
  Sex: Male

DRUGS (1)
  1. VENTAVIS [Suspect]
     Active Substance: ILOPROST
     Indication: PULMONARY ARTERIAL HYPERTENSION
     Dosage: 1 DF, 6ID
     Route: 055
     Dates: start: 20110826

REACTIONS (5)
  - Syncope [Unknown]
  - Dyspnoea [Unknown]
  - Fall [Unknown]
  - Cardiovascular disorder [Unknown]
  - Device use error [Unknown]

NARRATIVE: CASE EVENT DATE: 20140616
